FAERS Safety Report 6254482-3 (Version None)
Quarter: 2009Q3

REPORT INFORMATION
  Report Type: 
  Country: None (occurrence: None)
  Receive Date: 20090701
  Receipt Date: 20090701
  Transmission Date: 20100115
  Serious: Yes (Other)
  Sender: FDA-Public Use
  Company Number: None

PATIENT
  Age: 35 Year
  Sex: Female
  Weight: 77.1115 kg

DRUGS (2)
  1. TERBUTALINE SULFATE [Suspect]
     Indication: PREMATURE LABOUR
     Dosage: 1 TABLET VERY 4 HOURS PO
     Route: 048
     Dates: start: 20090615
  2. TERBUTALINE SULFATE [Suspect]
     Indication: PROPHYLAXIS
     Dosage: 1 TABLET VERY 4 HOURS PO
     Route: 048
     Dates: start: 20090615

REACTIONS (1)
  - SALIVARY DUCT OBSTRUCTION [None]
